FAERS Safety Report 9284129 (Version 1)
Quarter: 2013Q2

REPORT INFORMATION
  Report Type: Spontaneous
  Country: US (occurrence: US)
  Receive Date: 20130510
  Receipt Date: 20130510
  Transmission Date: 20140414
  Serious: Yes (Hospitalization, Disabling, Other)
  Sender: FDA-Public Use
  Company Number: US-009507513-0805USA02812

PATIENT
  Sex: Female

DRUGS (3)
  1. FOSAMAX [Suspect]
     Indication: OSTEOPOROSIS
     Dosage: 70 MG, UNK
     Route: 048
     Dates: start: 2000, end: 20060407
  2. ASPIRIN [Concomitant]
     Dosage: UNK MG, UNK
     Dates: start: 1981
  3. LIPITOR [Concomitant]
     Indication: BLOOD CHOLESTEROL
     Dosage: UNK
     Dates: start: 2003

REACTIONS (27)
  - Nerve injury [Not Recovered/Not Resolved]
  - Glaucoma [Unknown]
  - Diabetes mellitus [Unknown]
  - Arthropathy [Unknown]
  - Adverse event [Unknown]
  - Arthritis [Unknown]
  - Osteonecrosis of jaw [Unknown]
  - Tooth disorder [Not Recovered/Not Resolved]
  - Tooth disorder [Unknown]
  - Dental caries [Unknown]
  - Anxiety disorder [Unknown]
  - Depression [Unknown]
  - Sensitivity of teeth [Unknown]
  - Bone loss [Unknown]
  - Periodontitis [Not Recovered/Not Resolved]
  - Thyroid disorder [Unknown]
  - Sinus disorder [Unknown]
  - Osteoarthritis [Unknown]
  - Hypertension [Unknown]
  - Migraine [Unknown]
  - Neuropathy peripheral [Unknown]
  - Chest pain [Unknown]
  - Oral infection [Unknown]
  - Impaired healing [Unknown]
  - Abdominal pain [Unknown]
  - Pain in extremity [Unknown]
  - Gastrooesophageal reflux disease [Unknown]
